FAERS Safety Report 8891335 (Version 1)
Quarter: 2012Q4

REPORT INFORMATION
  Report Type: Spontaneous
  Country: US (occurrence: None)
  Receive Date: 20121105
  Receipt Date: 20121105
  Transmission Date: 20130627
  Serious: Yes (Disabling)
  Sender: FDA-Public Use
  Company Number: None

PATIENT
  Age: 76 Year
  Sex: Male
  Weight: 89.81 kg

DRUGS (1)
  1. METRONIDAZOLE FLAG [Suspect]
     Indication: CLOSTRIDIAL INFECTION
     Dosage: 500 MG 4 PER DAY
500 MG 4 Per day
3-28 + 2-16 + 4-07-12
51 Tot.

REACTIONS (1)
  - Neuropathy peripheral [None]
